FAERS Safety Report 20711339 (Version 1)
Quarter: 2022Q2

REPORT INFORMATION
  Report Type: Spontaneous
  Country: US (occurrence: US)
  Receive Date: 20220414
  Receipt Date: 20220414
  Transmission Date: 20220720
  Serious: No
  Sender: FDA-Public Use
  Company Number: US-MYOVANT SCIENCES GMBH-2021MYSCI1200385

PATIENT
  Age: 53 Year
  Sex: Male

DRUGS (3)
  1. ORGOVYX [Suspect]
     Active Substance: RELUGOLIX
     Indication: Prostate cancer
     Dosage: 360 MILLIGRAM, ONE TIME DOSE
     Route: 048
     Dates: start: 20210522, end: 20210522
  2. ORGOVYX [Suspect]
     Active Substance: RELUGOLIX
     Dosage: 120 MILLIGRAM, QD
     Route: 048
     Dates: start: 20210523
  3. ORGOVYX [Suspect]
     Active Substance: RELUGOLIX
     Dosage: UNK

REACTIONS (5)
  - Spinal stenosis [Unknown]
  - Intervertebral disc protrusion [Unknown]
  - Nerve compression [Unknown]
  - Drug hypersensitivity [Unknown]
  - Muscle contractions involuntary [Unknown]

NARRATIVE: CASE EVENT DATE: 20211201
